FAERS Safety Report 22056169 (Version 1)
Quarter: 2023Q1

REPORT INFORMATION
  Report Type: Spontaneous
  Country: US (occurrence: US)
  Receive Date: 20230302
  Receipt Date: 20230302
  Transmission Date: 20230417
  Serious: No
  Sender: FDA-Public Use
  Company Number: US-BRAINTREE LABORATORIES, INC.-2023BTE00019

PATIENT
  Age: 73 Year
  Sex: Female

DRUGS (4)
  1. SUTAB [Suspect]
     Active Substance: MAGNESIUM SULFATE\POTASSIUM CHLORIDE\SODIUM SULFATE
     Indication: Colonoscopy
     Dosage: 1 X 20 OR 21 TABLETS, 1X
     Route: 048
     Dates: start: 20230111, end: 20230112
  2. LEVOTHYROXINE [Concomitant]
     Active Substance: LEVOTHYROXINE
  3. VITAMIN B12 [Concomitant]
     Active Substance: CYANOCOBALAMIN
  4. DIETARY SUPPLEMENT [Concomitant]
     Active Substance: DIETARY SUPPLEMENT

REACTIONS (8)
  - Malaise [Recovering/Resolving]
  - Influenza [Recovering/Resolving]
  - Pain [Recovering/Resolving]
  - Asthenia [Not Recovered/Not Resolved]
  - Cough [Recovering/Resolving]
  - Hyperhidrosis [Recovering/Resolving]
  - Vomiting [Recovered/Resolved]
  - Nausea [Recovered/Resolved]

NARRATIVE: CASE EVENT DATE: 20230111
